FAERS Safety Report 21524136 (Version 1)
Quarter: 2022Q4

REPORT INFORMATION
  Report Type: Spontaneous
  Country: FR (occurrence: FR)
  Receive Date: 20221029
  Receipt Date: 20221029
  Transmission Date: 20230113
  Serious: Yes (Hospitalization)
  Sender: FDA-Public Use
  Company Number: None

PATIENT
  Age: 56 Year
  Sex: Female

DRUGS (2)
  1. NAPROXEN [Suspect]
     Active Substance: NAPROXEN
     Indication: Tooth infection
     Dosage: UNIT DOSE: 550 MG, FREQUENCY TIME : 1 TOTAL, DURATION : 1 DAY
     Route: 065
     Dates: start: 20180806, end: 20180806
  2. AMOXICILLIN [Suspect]
     Active Substance: AMOXICILLIN
     Indication: Tooth infection
     Dosage: UNIT DOSE: 500 MG, FREQUENCY TIME : 1 TOTAL , DURATION : 1 DAY
     Route: 065
     Dates: start: 20180806, end: 20180806

REACTIONS (2)
  - Anaphylactic shock [Recovered/Resolved]
  - Allergy test positive [Recovered/Resolved]

NARRATIVE: CASE EVENT DATE: 20180806
